FAERS Safety Report 20431248 (Version 1)
Quarter: 2022Q1

REPORT INFORMATION
  Report Type: Spontaneous
  Country: IT (occurrence: IT)
  Receive Date: 20220204
  Receipt Date: 20220204
  Transmission Date: 20220423
  Serious: Yes (Other)
  Sender: FDA-Public Use
  Company Number: IT-CELGENE-ITA-20220105807

PATIENT
  Age: 50 Year
  Sex: Male

DRUGS (19)
  1. DEXAMETHASONE [Suspect]
     Active Substance: DEXAMETHASONE
     Indication: Plasma cell myeloma
     Route: 065
     Dates: start: 20211102
  2. DEXAMETHASONE [Suspect]
     Active Substance: DEXAMETHASONE
     Indication: Plasma cell myeloma
     Route: 065
     Dates: start: 20211026, end: 20211026
  3. CARFILZOMIB [Suspect]
     Active Substance: CARFILZOMIB
     Indication: Plasma cell myeloma
     Route: 065
  4. ISATUXIMAB [Suspect]
     Active Substance: ISATUXIMAB
     Indication: Plasma cell myeloma
     Route: 065
     Dates: start: 20211026, end: 20211026
  5. ISATUXIMAB [Suspect]
     Active Substance: ISATUXIMAB
     Route: 065
     Dates: start: 20211123
  6. LENALIDOMIDE [Suspect]
     Active Substance: LENALIDOMIDE
     Indication: Plasma cell myeloma
     Route: 048
     Dates: start: 20211027
  7. TRIMETON [Concomitant]
     Active Substance: CHLORPHENIRAMINE MALEATE
     Indication: Respiratory distress
     Route: 065
     Dates: start: 20211026, end: 20211026
  8. TRIMETON [Concomitant]
     Active Substance: CHLORPHENIRAMINE MALEATE
     Route: 065
     Dates: start: 20211123, end: 20211123
  9. ACETAMINOPHEN [Concomitant]
     Active Substance: ACETAMINOPHEN
     Indication: Respiratory distress
     Route: 048
     Dates: start: 20211123, end: 20211123
  10. OXYGEN [Concomitant]
     Active Substance: OXYGEN
     Indication: Respiratory distress
     Route: 065
     Dates: start: 20211126, end: 20211126
  11. ALBUTEROL [Concomitant]
     Active Substance: ALBUTEROL
     Indication: Product used for unknown indication
     Route: 065
  12. MONTELUKAST [Concomitant]
     Active Substance: MONTELUKAST SODIUM
     Indication: Prophylaxis
     Route: 065
     Dates: start: 20211025
  13. OMEPRAZOLE [Concomitant]
     Active Substance: OMEPRAZOLE
     Indication: Product used for unknown indication
     Route: 041
  14. FUROSEMIDE [Concomitant]
     Active Substance: FUROSEMIDE
     Indication: Respiratory distress
     Route: 065
     Dates: start: 20211026, end: 20211026
  15. FUROSEMIDE [Concomitant]
     Active Substance: FUROSEMIDE
     Route: 065
     Dates: start: 20211116
  16. COVID VACCINATION [Concomitant]
     Indication: Prophylaxis
     Route: 065
     Dates: start: 20210922, end: 20210922
  17. HYDROCORTISONE SODIUM SUCCINATE [Concomitant]
     Active Substance: HYDROCORTISONE SODIUM SUCCINATE
     Indication: Respiratory distress
     Route: 065
     Dates: start: 20211026, end: 20211026
  18. FAMOTIDINA [Concomitant]
     Indication: Respiratory distress
     Route: 065
     Dates: start: 20211123, end: 20211123
  19. CHLORPHENIRAMINE MALEATE [Concomitant]
     Active Substance: CHLORPHENIRAMINE MALEATE
     Indication: Product used for unknown indication
     Route: 041

REACTIONS (1)
  - Respiratory distress [Recovered/Resolved]

NARRATIVE: CASE EVENT DATE: 20211026
